FAERS Safety Report 5331412-X (Version None)
Quarter: 2007Q2

REPORT INFORMATION
  Report Type: 
  Country: None (occurrence: None)
  Receive Date: 20070522
  Receipt Date: 20070511
  Transmission Date: 20071010
  Serious: Yes (Hospitalization)
  Sender: FDA-Public Use
  Company Number: DE-SANOFI-SYNTHELABO-A04200700624

PATIENT
  Sex: Female
  Weight: 69 kg

DRUGS (2)
  1. ELOXATIN [Suspect]
     Indication: GALLBLADDER CANCER
     Route: 041
     Dates: start: 20070410, end: 20070410
  2. GEMCITABINE HCL [Concomitant]
     Indication: GALLBLADDER CANCER
     Route: 041
     Dates: start: 20070401, end: 20070401

REACTIONS (9)
  - BLOOD PRESSURE DECREASED [None]
  - BODY TEMPERATURE INCREASED [None]
  - CHILLS [None]
  - CONVULSION [None]
  - COUGH [None]
  - HYPERSENSITIVITY [None]
  - OESOPHAGEAL SPASM [None]
  - PHARMACEUTICAL PRODUCT COMPLAINT [None]
  - SWELLING FACE [None]
